FAERS Safety Report 21338414 (Version 1)
Quarter: 2022Q3

REPORT INFORMATION
  Report Type: Spontaneous
  Country: US (occurrence: US)
  Receive Date: 20220915
  Receipt Date: 20220915
  Transmission Date: 20221027
  Serious: Yes (Other)
  Sender: FDA-Public Use
  Company Number: US-ALLERGAN-2229532US

PATIENT
  Sex: Female

DRUGS (1)
  1. REFRESH OPTIVE GEL DROPS [Suspect]
     Active Substance: CARBOXYMETHYLCELLULOSE SODIUM\GLYCERIN
     Indication: Dry eye
     Dosage: UNK

REACTIONS (2)
  - Cataract [Unknown]
  - Eye irritation [Unknown]
